FAERS Safety Report 24002205 (Version 2)
Quarter: 2024Q3

REPORT INFORMATION
  Report Type: Spontaneous
  Country: US (occurrence: US)
  Receive Date: 20240622
  Receipt Date: 20240730
  Transmission Date: 20241017
  Serious: No
  Sender: UNITED THERAPEUTICS
  Company Number: US-UNITED THERAPEUTICS-UNT-2024-004955

PATIENT
  Sex: Female

DRUGS (18)
  1. ORENITRAM [Suspect]
     Active Substance: TREPROSTINIL
     Indication: Pulmonary arterial hypertension
     Dosage: 1.75 MG (3 TABLETS OF 0.25 MG AND 1 TABLET OF 1 MG), TID
     Dates: end: 202404
  2. ORENITRAM [Suspect]
     Active Substance: TREPROSTINIL
     Dosage: 2 MG, TID
     Dates: start: 20240411, end: 202404
  3. ORENITRAM [Suspect]
     Active Substance: TREPROSTINIL
     Dosage: 1.75 MG, TID
     Dates: start: 202404, end: 2024
  4. ORENITRAM [Suspect]
     Active Substance: TREPROSTINIL
     Dosage: 1.875 MG, TID
     Dates: start: 2024, end: 2024
  5. ORENITRAM [Suspect]
     Active Substance: TREPROSTINIL
     Dosage: 1.75 MG (1 TABLET OF 1 MG AND 3 TABLETS OF 0.25 MG), TID
     Dates: start: 2024, end: 2024
  6. ORENITRAM [Suspect]
     Active Substance: TREPROSTINIL
     Dosage: 1.25 MG, TID
     Dates: start: 2024
  7. ORENITRAM [Suspect]
     Active Substance: TREPROSTINIL
     Dosage: UNK
  8. ORENITRAM [Suspect]
     Active Substance: TREPROSTINIL
     Indication: Pulmonary arterial hypertension
     Dosage: UNK
  9. ORENITRAM [Suspect]
     Active Substance: TREPROSTINIL
     Indication: Pulmonary arterial hypertension
     Dosage: UNK
  10. ORENITRAM [Suspect]
     Active Substance: TREPROSTINIL
     Indication: Pulmonary arterial hypertension
     Dosage: UNK
  11. TYLENOL ARTHRITIS PAIN [Suspect]
     Active Substance: ACETAMINOPHEN
     Indication: Pain in extremity
     Dosage: 2 TABLETS, BID
  12. TYLENOL ARTHRITIS PAIN [Suspect]
     Active Substance: ACETAMINOPHEN
     Indication: Arthralgia
  13. TYLENOL ARTHRITIS PAIN [Suspect]
     Active Substance: ACETAMINOPHEN
     Indication: Chest pain
  14. TYLENOL ARTHRITIS PAIN [Suspect]
     Active Substance: ACETAMINOPHEN
     Indication: Pain in jaw
  15. TYLENOL ARTHRITIS PAIN [Suspect]
     Active Substance: ACETAMINOPHEN
     Indication: Myalgia
  16. LETAIRIS [Suspect]
     Active Substance: AMBRISENTAN
     Indication: Pulmonary arterial hypertension
     Dosage: 10 MG, QD
     Dates: start: 202405
  17. SILDENAFIL CITRATE [Suspect]
     Active Substance: SILDENAFIL CITRATE
     Indication: Product used for unknown indication
     Dosage: UNK
  18. AMBRISENTAN [Suspect]
     Active Substance: AMBRISENTAN
     Indication: Product used for unknown indication
     Dosage: UNK

REACTIONS (22)
  - Lacrimation increased [Unknown]
  - Eye pruritus [Unknown]
  - Pain in extremity [Not Recovered/Not Resolved]
  - Arthralgia [Unknown]
  - Pain in jaw [Not Recovered/Not Resolved]
  - Chest pain [Not Recovered/Not Resolved]
  - Myalgia [Not Recovered/Not Resolved]
  - Headache [Not Recovered/Not Resolved]
  - Product dose omission issue [Unknown]
  - Therapy partial responder [Unknown]
  - Product dose omission in error [Recovered/Resolved]
  - Respiration abnormal [Unknown]
  - Fluid retention [Unknown]
  - Pruritus [Unknown]
  - Dizziness [Unknown]
  - Tinnitus [Not Recovered/Not Resolved]
  - Diarrhoea [Recovered/Resolved]
  - Memory impairment [Unknown]
  - Pain [Unknown]
  - Nausea [Unknown]
  - Hypoacusis [Unknown]
  - Visual impairment [Unknown]

NARRATIVE: CASE EVENT DATE: 20240101
